FAERS Safety Report 14433978 (Version 2)
Quarter: 2018Q1

REPORT INFORMATION
  Report Type: Report from Study
  Country: BR (occurrence: BR)
  Receive Date: 20180124
  Receipt Date: 20180220
  Transmission Date: 20180509
  Serious: No
  Sender: FDA-Public Use
  Company Number: PHHY2017BR165809

PATIENT
  Sex: Female
  Weight: 46 kg

DRUGS (4)
  1. COSENTYX [Suspect]
     Active Substance: SECUKINUMAB
     Indication: PSORIASIS
     Dosage: 300 MG (150 MGX2), QMO
     Route: 058
     Dates: start: 20171006
  2. LOSARTAN. [Concomitant]
     Active Substance: LOSARTAN
     Indication: HYPERTENSION
     Dosage: 2 DF, QD
     Route: 048
  3. COSENTYX [Suspect]
     Active Substance: SECUKINUMAB
     Dosage: 300 MG, QMO
     Route: 058
     Dates: start: 20171103, end: 20171103
  4. COSENTYX [Suspect]
     Active Substance: SECUKINUMAB
     Dosage: 300 MG (150 MGX2), QMO
     Route: 058
     Dates: start: 201712, end: 201712

REACTIONS (12)
  - Malaise [Unknown]
  - Skin exfoliation [Recovering/Resolving]
  - Bone pain [Unknown]
  - Weight decreased [Recovering/Resolving]
  - Decreased immune responsiveness [Not Recovered/Not Resolved]
  - Skin discolouration [Unknown]
  - Pruritus [Recovered/Resolved]
  - Dizziness [Unknown]
  - Fatigue [Not Recovered/Not Resolved]
  - Inappropriate schedule of drug administration [Unknown]
  - Concomitant disease aggravated [Recovering/Resolving]
  - Pruritus generalised [Not Recovered/Not Resolved]
